FAERS Safety Report 17867600 (Version 1)
Quarter: 2020Q2

REPORT INFORMATION
  Report Type: Spontaneous
  Country: US (occurrence: US)
  Receive Date: 20200605
  Receipt Date: 20200605
  Transmission Date: 20200714
  Serious: Yes (Hospitalization)
  Sender: FDA-Public Use
  Company Number: US-FRESENIUS MEDICAL CARE RENAL THERAPIES GROUP-FMC-2006-000605

PATIENT
  Age: 67 Year
  Sex: Female

DRUGS (18)
  1. AURYXIA [Concomitant]
     Active Substance: TETRAFERRIC TRICITRATE DECAHYDRATE
  2. FOLIC ACID. [Concomitant]
     Active Substance: FOLIC ACID
  3. DELFLEX WITH DEXTROSE 1.5% LOW MAGNESIUM LOW CALCIUM [Suspect]
     Active Substance: CALCIUM CHLORIDE\DEXTROSE\MAGNESIUM CHLORIDE\SODIUM CHLORIDE\SODIUM LACTATE
     Indication: END STAGE RENAL DISEASE
     Dosage: FILL VOLUME 2000 ML, 3 EXCHANGES, LAST FILL OF 2500 ML, DAYTIME EXCHANGE 2500 ML
     Route: 033
  4. DELFLEX WITH DEXTROSE 2.5% LOW MAGNESIUM LOW CALCIUM [Suspect]
     Active Substance: CALCIUM CHLORIDE\DEXTROSE\MAGNESIUM CHLORIDE\SODIUM CHLORIDE\SODIUM LACTATE
     Indication: END STAGE RENAL DISEASE
     Dosage: FILL VOLUME 2000 ML, 3 EXCHANGES, LAST FILL OF 2500 ML, DAYTIME EXCHANGE 2500 ML
     Route: 033
  5. DELFLEX WITH DEXTROSE 4.25% LOW MAGNESIUM LOW CALCIUM [Suspect]
     Active Substance: CALCIUM CHLORIDE\DEXTROSE\MAGNESIUM CHLORIDE\SODIUM CHLORIDE\SODIUM LACTATE
     Indication: END STAGE RENAL DISEASE
     Dosage: FILL VOLUME 2000 ML, 3 EXCHANGES, LAST FILL OF 2500 ML, DAYTIME EXCHANGE 2500 ML
     Route: 033
  6. CARVEDILOL. [Concomitant]
     Active Substance: CARVEDILOL
  7. LOVASTATIN. [Concomitant]
     Active Substance: LOVASTATIN
  8. ALLOPURINOL. [Concomitant]
     Active Substance: ALLOPURINOL
  9. CALCITRIOL. [Concomitant]
     Active Substance: CALCITRIOL
  10. FAMOTIDINE. [Concomitant]
     Active Substance: FAMOTIDINE
  11. AMIODARONE [Concomitant]
     Active Substance: AMIODARONE
  12. CLONIDINE. [Concomitant]
     Active Substance: CLONIDINE
  13. DIALYVITE [Concomitant]
     Active Substance: ASCORBIC ACID\BIOTIN\CALCIUM PANTOTHENATE\COBALAMIN\FOLIC ACID\NIACINAMIDE\PYRIDOXINE HYDROCHLORIDE\RIBOFLAVIN\THIAMINE MONONITRATE
  14. ELIQUIS [Concomitant]
     Active Substance: APIXABAN
  15. MIRCERA [Concomitant]
     Active Substance: METHOXY POLYETHYLENE GLYCOL-EPOETIN BETA
  16. SENSIPAR [Concomitant]
     Active Substance: CINACALCET HYDROCHLORIDE
  17. TRAMADOL. [Concomitant]
     Active Substance: TRAMADOL
  18. IMDUR [Concomitant]
     Active Substance: ISOSORBIDE MONONITRATE

REACTIONS (3)
  - Treatment noncompliance [Unknown]
  - Umbilical hernia [Unknown]
  - Fluid overload [Unknown]
